FAERS Safety Report 7704686-5 (Version None)
Quarter: 2011Q3

REPORT INFORMATION
  Report Type: 
  Country: None (occurrence: None)
  Receive Date: 20110823
  Receipt Date: 20110818
  Transmission Date: 20111222
  Serious: Yes (Hospitalization)
  Sender: FDA-Public Use
  Company Number: US-GILEAD-2010-0033612

PATIENT
  Sex: Female
  Weight: 97.701 kg

DRUGS (18)
  1. CALCIUM CARBONATE [Concomitant]
     Indication: GASTROOESOPHAGEAL REFLUX DISEASE
     Dates: start: 20100726
  2. AMBRISENTAN [Suspect]
     Indication: PULMONARY ARTERIAL HYPERTENSION
     Route: 048
     Dates: start: 20100714, end: 20101116
  3. DILTIAZEM [Concomitant]
     Indication: PULMONARY ARTERIAL HYPERTENSION
     Dates: start: 20091013
  4. ASPIRIN [Concomitant]
     Indication: CORONARY ARTERY DISEASE
     Dates: start: 20010101
  5. ROSUVASTATIN [Concomitant]
     Indication: HYPERLIPIDAEMIA
     Dates: start: 20100917
  6. OMEGA 3 FATTY ACIDS [Concomitant]
     Indication: HYPERLIPIDAEMIA
     Dates: start: 20090101
  7. MOMETASONE FUROATE [Concomitant]
     Indication: NASAL CONGESTION
     Dates: start: 20100308
  8. OMEPRAZOLE [Concomitant]
     Indication: GASTROOESOPHAGEAL REFLUX DISEASE
     Dates: start: 20010101
  9. TRAZODONE HCL [Concomitant]
     Dates: start: 20010101
  10. TRAMADOL HCL [Concomitant]
     Indication: ARTHRITIS
     Dates: start: 20100726
  11. FLAXSEED OIL [Concomitant]
     Dates: start: 20090101
  12. LEVOTHYROXINE SODIUM [Concomitant]
     Indication: HYPOTHYROIDISM
     Dates: start: 19820101
  13. TADALAFIL [Concomitant]
     Indication: PULMONARY ARTERIAL HYPERTENSION
     Dates: start: 20100215
  14. BUMETANIDE [Concomitant]
     Indication: FLUID RETENTION
     Dates: start: 20091120
  15. ACETAMINOPHEN [Concomitant]
     Indication: ARTHRITIS
     Dates: start: 19820101
  16. SPIRONOLACTONE [Concomitant]
     Indication: FLUID RETENTION
     Dates: start: 20100210
  17. MELOXICAM [Concomitant]
     Indication: ARTHRITIS
     Dates: start: 20010101
  18. POTASSIUM CHLORIDE [Concomitant]
     Indication: ELECTROLYTE SUBSTITUTION THERAPY
     Dates: start: 20091013

REACTIONS (1)
  - RIGHT VENTRICULAR FAILURE [None]
